FAERS Safety Report 13479033 (Version 4)
Quarter: 2017Q3

REPORT INFORMATION
  Report Type: Report from Study
  Country: US (occurrence: US)
  Receive Date: 20170424
  Receipt Date: 20170904
  Transmission Date: 20171127
  Serious: No
  Sender: FDA-Public Use
  Company Number: US-AMGEN-USASL2017022877

PATIENT
  Age: 68 Year
  Sex: Female

DRUGS (2)
  1. REPATHA [Suspect]
     Active Substance: EVOLOCUMAB
     Indication: HYPERCHOLESTEROLAEMIA
  2. REPATHA [Suspect]
     Active Substance: EVOLOCUMAB
     Indication: TYPE IIA HYPERLIPIDAEMIA
     Dosage: 140 MG, Q2WK
     Route: 065

REACTIONS (17)
  - Osteoarthritis [Not Recovered/Not Resolved]
  - Muscle spasms [Unknown]
  - Musculoskeletal pain [Unknown]
  - Frustration tolerance decreased [Unknown]
  - Pain in extremity [Unknown]
  - Burning sensation [Unknown]
  - Arthralgia [Unknown]
  - Myalgia [Unknown]
  - Urinary tract infection [Unknown]
  - Alopecia [Not Recovered/Not Resolved]
  - Muscular weakness [Unknown]
  - Fatigue [Unknown]
  - Diarrhoea [Unknown]
  - Peripheral swelling [Unknown]
  - Gait disturbance [Unknown]
  - Sleep disorder due to a general medical condition [Unknown]
  - Depressed mood [Unknown]
